FAERS Safety Report 10184242 (Version 1)
Quarter: 2014Q2

REPORT INFORMATION
  Report Type: Spontaneous
  Country: US (occurrence: US)
  Receive Date: 20140520
  Receipt Date: 20140520
  Transmission Date: 20141212
  Serious: No
  Sender: FDA-Public Use
  Company Number: US-ASTRAZENECA-2013SE78867

PATIENT
  Sex: Male

DRUGS (2)
  1. RHINOCORT AQUA [Suspect]
     Indication: SEASONAL ALLERGY
     Route: 045
  2. RHINOCORT AQUA [Suspect]
     Indication: SEASONAL ALLERGY
     Route: 045

REACTIONS (9)
  - Headache [Unknown]
  - Dyspnoea [Unknown]
  - Sinusitis [Unknown]
  - Nasal congestion [Not Recovered/Not Resolved]
  - Ear congestion [Not Recovered/Not Resolved]
  - Ear pain [Not Recovered/Not Resolved]
  - Oropharyngeal pain [Not Recovered/Not Resolved]
  - Drug dose omission [Unknown]
  - Off label use [Unknown]
